FAERS Safety Report 19685400 (Version 1)
Quarter: 2021Q3

REPORT INFORMATION
  Report Type: Spontaneous
  Country: KR (occurrence: KR)
  Receive Date: 20210811
  Receipt Date: 20210811
  Transmission Date: 20211014
  Serious: Yes (Other)
  Sender: FDA-Public Use
  Company Number: KR-TAKEDA-2021TUS048982

PATIENT
  Age: 6 Month

DRUGS (5)
  1. TRANEXAMIC ACID. [Concomitant]
     Active Substance: TRANEXAMIC ACID
     Dosage: 10 MILLIGRAM/KILOGRAM, Q6HR
     Route: 065
  2. EMICIZUMAB. [Concomitant]
     Active Substance: EMICIZUMAB
     Indication: PROPHYLAXIS
     Dosage: 3 MILLIGRAM/KILOGRAM, 1/WEEK
     Route: 058
  3. FACTOR VIII INHIBITOR BYPASSING FRACTION [Suspect]
     Active Substance: ANTI-INHIBITOR COAGULANT COMPLEX
     Indication: FACTOR VIII DEFICIENCY
     Dosage: 120 MICROGRAM/KILOGRAM, Q3HR
     Route: 065
  4. EMICIZUMAB. [Concomitant]
     Active Substance: EMICIZUMAB
     Dosage: 1.5 MILLIGRAM/KILOGRAM
     Route: 065
  5. EMICIZUMAB. [Concomitant]
     Active Substance: EMICIZUMAB
     Dosage: 3 MILLIGRAM/KILOGRAM, Q2WEEKS
     Route: 065

REACTIONS (1)
  - Drug ineffective [Unknown]
